FAERS Safety Report 21876109 (Version 2)
Quarter: 2024Q1

REPORT INFORMATION
  Report Type: Report from Study
  Country: CA (occurrence: CA)
  Receive Date: 20230118
  Receipt Date: 20240108
  Transmission Date: 20240409
  Serious: Yes (Hospitalization, Other)
  Sender: FDA-Public Use
  Company Number: CA-ABBVIE-4273553

PATIENT
  Age: 78 Year
  Sex: Male

DRUGS (2)
  1. SKYRIZI [Suspect]
     Active Substance: RISANKIZUMAB-RZAA
     Indication: Psoriasis
     Route: 058
     Dates: start: 20211101
  2. SKYRIZI [Suspect]
     Active Substance: RISANKIZUMAB-RZAA
     Route: 058

REACTIONS (19)
  - Rib fracture [Recovered/Resolved]
  - Fall [Unknown]
  - Unevaluable event [Unknown]
  - Tooth fracture [Unknown]
  - Localised infection [Unknown]
  - Papule [Unknown]
  - Cellulitis [Unknown]
  - Dry skin [Unknown]
  - Pruritus [Unknown]
  - Gait inability [Unknown]
  - Movement disorder [Unknown]
  - Tremor [Unknown]
  - Loss of personal independence in daily activities [Unknown]
  - Arthritis [Unknown]
  - Muscle spasms [Unknown]
  - Arthritis [Recovered/Resolved]
  - Meningitis [Unknown]
  - Multiple sclerosis relapse [Unknown]
  - Skin discharge [Unknown]

NARRATIVE: CASE EVENT DATE: 20221201
